FAERS Safety Report 22103864 (Version 1)
Quarter: 2023Q1

REPORT INFORMATION
  Report Type: Spontaneous
  Country: US (occurrence: US)
  Receive Date: 20230316
  Receipt Date: 20230316
  Transmission Date: 20230418
  Serious: Yes (Other)
  Sender: FDA-Public Use
  Company Number: US-JNJFOC-20230325797

PATIENT
  Age: 69 Year
  Sex: Female

DRUGS (3)
  1. ULTRAM [Suspect]
     Active Substance: TRAMADOL HYDROCHLORIDE
     Indication: Product used for unknown indication
     Route: 065
  2. IBRUTINIB [Suspect]
     Active Substance: IBRUTINIB
     Indication: Chronic lymphocytic leukaemia
     Route: 048
     Dates: start: 20150101
  3. IBRUTINIB [Suspect]
     Active Substance: IBRUTINIB
     Route: 048

REACTIONS (9)
  - Loss of consciousness [Unknown]
  - Knee arthroplasty [Recovered/Resolved]
  - Lymphadenopathy [Unknown]
  - Herpes zoster [Unknown]
  - Heart rate irregular [Unknown]
  - Dental caries [Recovering/Resolving]
  - Adenoidal hypertrophy [Unknown]
  - Hypertension [Recovered/Resolved]
  - Drug hypersensitivity [Unknown]

NARRATIVE: CASE EVENT DATE: 20211129
